FAERS Safety Report 21674035 (Version 3)
Quarter: 2022Q4

REPORT INFORMATION
  Report Type: Spontaneous
  Country: US (occurrence: US)
  Receive Date: 20221202
  Receipt Date: 20221219
  Transmission Date: 20230112
  Serious: No
  Sender: FDA-Public Use
  Company Number: US-PFIZER INC-202201343388

PATIENT
  Age: 86 Year
  Sex: Male
  Weight: 59.87 kg

DRUGS (1)
  1. PAXLOVID [Suspect]
     Active Substance: NIRMATRELVIR\RITONAVIR
     Indication: COVID-19 treatment
     Dosage: 3 DF, 2X/DAY
     Route: 048
     Dates: start: 20221130

REACTIONS (10)
  - Intentional product misuse [Unknown]
  - Wrong technique in product usage process [Unknown]
  - Product size issue [Unknown]
  - Poor quality product administered [Unknown]
  - Pyrexia [Unknown]
  - COVID-19 [Unknown]
  - Disease recurrence [Unknown]
  - Dysgeusia [Unknown]
  - Diarrhoea [Unknown]
  - Headache [Unknown]
